FAERS Safety Report 22073936 (Version 1)
Quarter: 2023Q1

REPORT INFORMATION
  Report Type: Report from Study
  Country: FR (occurrence: FR)
  Receive Date: 20230308
  Receipt Date: 20230308
  Transmission Date: 20230418
  Serious: Yes (Other)
  Sender: FDA-Public Use
  Company Number: FR-002147023-NVSC2023FR050190

PATIENT
  Sex: Male

DRUGS (2)
  1. ALPELISIB [Suspect]
     Active Substance: ALPELISIB
     Indication: Hypertrophy
     Dosage: 250 MG (2X125 MG)
     Route: 065
     Dates: end: 202208
  2. ALPELISIB [Suspect]
     Active Substance: ALPELISIB
     Indication: K-ras gene mutation

REACTIONS (2)
  - Sepsis [Unknown]
  - Diabetes mellitus inadequate control [Unknown]
